FAERS Safety Report 15363605 (Version 3)
Quarter: 2018Q4

REPORT INFORMATION
  Report Type: Spontaneous
  Country: US (occurrence: US)
  Receive Date: 20180907
  Receipt Date: 20181019
  Transmission Date: 20190204
  Serious: No
  Sender: FDA-Public Use
  Company Number: US-VIFOR (INTERNATIONAL) INC.-VIT-2018-08817

PATIENT
  Age: 77 Year
  Sex: Male

DRUGS (30)
  1. VITAMIN C [Concomitant]
     Active Substance: ASCORBIC ACID
  2. VITAMIN E [Concomitant]
     Active Substance: .ALPHA.-TOCOPHEROL
     Dates: end: 201607
  3. COENZYME Q10 [Concomitant]
     Active Substance: UBIDECARENONE
     Dates: end: 20180208
  4. LUTEIN [Concomitant]
     Active Substance: LUTEIN
     Dates: end: 201602
  5. SILVER COLLOIDAL [Concomitant]
     Active Substance: SILVER
     Dosage: 1/3 OUNCE
     Dates: start: 201808
  6. FISH OIL [Concomitant]
     Active Substance: FISH OIL
  7. ALPHA LIPOIC ACID [Concomitant]
     Active Substance: .ALPHA.-LIPOIC ACID
  8. SILVER COLLOIDAL [Concomitant]
     Active Substance: SILVER
     Dates: start: 20180831
  9. OMEGA 3 [Concomitant]
     Active Substance: OMEGA-3 FATTY ACIDS
  10. VELTASSA [Suspect]
     Active Substance: PATIROMER
     Indication: BLOOD POTASSIUM INCREASED
     Route: 048
     Dates: start: 20180808, end: 20180909
  11. ENALAPRIL [Concomitant]
     Active Substance: ENALAPRIL
     Dates: start: 20180808, end: 20180909
  12. PREGNENOLONE [Concomitant]
     Active Substance: PREGNENOLONE
  13. CALCIUM [Concomitant]
     Active Substance: CALCIUM
  14. VITAMIN E [Concomitant]
     Active Substance: .ALPHA.-TOCOPHEROL
     Dosage: INCREASED FROM 200 IU
     Dates: start: 201607
  15. COENZYME Q10 [Concomitant]
     Active Substance: UBIDECARENONE
     Dates: start: 20180208
  16. BIOTIN [Concomitant]
     Active Substance: BIOTIN
     Dates: start: 201507
  17. ASTAXANTHIN [Concomitant]
     Dates: start: 201511
  18. LUTEIN [Concomitant]
     Active Substance: LUTEIN
     Dates: start: 201602
  19. MAGNESIUM [Concomitant]
     Active Substance: MAGNESIUM
  20. LATANOPROST. [Concomitant]
     Active Substance: LATANOPROST
     Dosage: ONE DROP PER NIGHT
     Dates: start: 20171002
  21. DHEA [Concomitant]
     Active Substance: PRASTERONE
  22. MELATONIN [Concomitant]
     Active Substance: MELATONIN
  23. CALCIUM MAGNESIUM ZINC [Concomitant]
     Active Substance: CALCIUM\MAGNESIUM\ZINC
     Dosage: 1000MG, 500MG, 25MG
     Dates: start: 201808
  24. SILVER COLLOIDAL [Concomitant]
     Active Substance: SILVER
     Dates: start: 201801, end: 201808
  25. PROCRIT [Concomitant]
     Active Substance: ERYTHROPOIETIN
     Dates: start: 201604
  26. ARMOUR THYROID [Concomitant]
     Active Substance: THYROID, PORCINE
     Indication: CONSTIPATION
     Dosage: MORNING 1.5 GRAINS, AFTERNOON .75 GRAINS
     Dates: start: 201701
  27. TESTOSTERONE ENANTATE [Concomitant]
     Active Substance: TESTOSTERONE
     Dosage: .3CC TWICE PER WEEK
  28. ZINC. [Concomitant]
     Active Substance: ZINC
  29. VITAMIN D3 [Concomitant]
     Active Substance: CHOLECALCIFEROL
     Dates: start: 201706
  30. GLUTATHIONE [Concomitant]
     Active Substance: GLUTATHIONE

REACTIONS (4)
  - Abdominal discomfort [Recovering/Resolving]
  - Off label use [Unknown]
  - Constipation [Unknown]
  - Dyschezia [Unknown]

NARRATIVE: CASE EVENT DATE: 201808
